FAERS Safety Report 5312877-6 (Version None)
Quarter: 2007Q2

REPORT INFORMATION
  Report Type: 
  Country: None (occurrence: None)
  Receive Date: 20070430
  Receipt Date: 20070418
  Transmission Date: 20071010
  Serious: Yes (Other)
  Sender: FDA-Public Use
  Company Number: US-PFIZER INC-2007031773

PATIENT
  Sex: Female
  Weight: 59.09 kg

DRUGS (4)
  1. LYRICA [Suspect]
     Indication: MUSCLE SPASMS
     Dates: start: 20070417
  2. LYRICA [Suspect]
  3. VITAMINS [Concomitant]
  4. ALL OTHER THERAPEUTIC PRODUCTS [Concomitant]

REACTIONS (1)
  - MUSCLE SPASMS [None]
